FAERS Safety Report 25210858 (Version 2)
Quarter: 2025Q2

REPORT INFORMATION
  Report Type: Spontaneous
  Country: US (occurrence: US)
  Receive Date: 20250417
  Receipt Date: 20250421
  Transmission Date: 20250717
  Serious: No
  Sender: PFIZER
  Company Number: US-PFIZER INC-PV202500044107

PATIENT
  Age: 51 Year
  Sex: Female

DRUGS (3)
  1. VELSIPITY [Interacting]
     Active Substance: ETRASIMOD ARGININE
     Dosage: 2 MG, DAILY
  2. FLUCONAZOLE [Interacting]
     Active Substance: FLUCONAZOLE
     Dosage: 400 MG, DAILY
  3. METOPROLOL [Interacting]
     Active Substance: METOPROLOL

REACTIONS (3)
  - Contraindicated product prescribed [Unknown]
  - Hypotension [Unknown]
  - Drug interaction [Unknown]
